FAERS Safety Report 25912263 (Version 1)
Quarter: 2025Q4

REPORT INFORMATION
  Report Type: Spontaneous
  Country: EU (occurrence: EU)
  Receive Date: 20251013
  Receipt Date: 20251013
  Transmission Date: 20260117
  Serious: Yes (Other)
  Sender: ALEXION PHARMACEUTICALS
  Company Number: EU-AstraZeneca-CH-00965674AM

PATIENT
  Age: 48 Year
  Sex: Female

DRUGS (1)
  1. LYNPARZA [Suspect]
     Active Substance: OLAPARIB
     Indication: Ovarian cancer
     Route: 065
     Dates: start: 20200608, end: 202208

REACTIONS (2)
  - Carbohydrate antigen 125 increased [Unknown]
  - Drug resistance [Unknown]
